FAERS Safety Report 4431172-0 (Version None)
Quarter: 2004Q3

REPORT INFORMATION
  Report Type: 
  Country: None (occurrence: None)
  Receive Date: 20040824
  Receipt Date: 20040811
  Transmission Date: 20050211
  Serious: Yes (Hospitalization)
  Sender: FDA-Public Use
  Company Number: FR-JNJFOC-20040803932

PATIENT
  Age: 66 Year
  Sex: Female
  Weight: 92 kg

DRUGS (2)
  1. CAELYX [Suspect]
     Indication: OVARIAN CANCER
     Dosage: 100 MG X2 CYCLES
     Route: 042
  2. LEXOMIL [Concomitant]

REACTIONS (8)
  - DERMATITIS BULLOUS [None]
  - DERMATITIS EXFOLIATIVE [None]
  - DYSPHAGIA [None]
  - GASTROOESOPHAGEAL REFLUX DISEASE [None]
  - NECROSIS [None]
  - OESOPHAGEAL ULCER [None]
  - RASH [None]
  - TOXIC SKIN ERUPTION [None]
